FAERS Safety Report 5977045-3 (Version None)
Quarter: 2008Q4

REPORT INFORMATION
  Report Type: 
  Country: None (occurrence: None)
  Receive Date: 20081203
  Receipt Date: 20081121
  Transmission Date: 20090506
  Serious: Yes (Other)
  Sender: FDA-Public Use
  Company Number: US-KINGPHARMUSA00001-K200801337

PATIENT
  Sex: Male
  Weight: 145.58 kg

DRUGS (10)
  1. SILVADENE [Suspect]
     Indication: RASH
     Dosage: UNK
     Dates: start: 20080401
  2. LISINOPRIL [Suspect]
     Dosage: 10 MG, UNK
  3. METOPROLOL [Concomitant]
  4. TRIAMTERENE AND HYDROCHLOROTHIAZIDE [Concomitant]
  5. CLONIDINE [Concomitant]
  6. POTASSIUM CHLORIDE [Concomitant]
  7. WARFARIN SODIUM [Concomitant]
  8. GLIPIZIDE [Concomitant]
     Indication: TYPE 2 DIABETES MELLITUS
  9. METFORMIN HCL [Concomitant]
     Indication: TYPE 2 DIABETES MELLITUS
  10. LEVOTHYROXINE SODIUM [Concomitant]

REACTIONS (6)
  - BLOODY DISCHARGE [None]
  - DERMATITIS [None]
  - LYMPHOEDEMA [None]
  - PHOTOSENSITIVITY REACTION [None]
  - RASH [None]
  - SKIN ULCER [None]
